FAERS Safety Report 11258831 (Version 2)
Quarter: 2015Q3

REPORT INFORMATION
  Report Type: Spontaneous
  Country: US (occurrence: US)
  Receive Date: 20150710
  Receipt Date: 20150729
  Transmission Date: 20151125
  Serious: Yes (Death)
  Sender: FDA-Public Use
  Company Number: US-PFIZER INC-2015225948

PATIENT
  Age: 55 Year
  Sex: Female
  Weight: 89.57 kg

DRUGS (1)
  1. INLYTA [Suspect]
     Active Substance: AXITINIB
     Indication: BREAST CANCER METASTATIC
     Dosage: 5 MG - 10 MG TWICE A DAY
     Dates: start: 20140826, end: 20150319

REACTIONS (3)
  - Product use issue [Unknown]
  - Disease progression [Fatal]
  - Breast cancer female [Fatal]
